FAERS Safety Report 6789981-9 (Version None)
Quarter: 2010Q2

REPORT INFORMATION
  Report Type: 
  Country: None (occurrence: None)
  Receive Date: 20100520
  Receipt Date: 20090911
  Transmission Date: 20101027
  Serious: Yes (Other)
  Sender: FDA-Public Use
  Company Number: 2009268855

PATIENT
  Age: 68 Year
  Sex: Female
  Weight: 59 kg

DRUGS (13)
  1. PROVERA [Suspect]
     Indication: HORMONE REPLACEMENT THERAPY
     Dosage: 10 MG, ORAL ; 10 MG
     Route: 048
     Dates: start: 19860101, end: 19960701
  2. PROVERA [Suspect]
     Indication: HORMONE REPLACEMENT THERAPY
     Dosage: 10 MG, ORAL ; 10 MG
     Route: 048
     Dates: start: 19961101, end: 19991101
  3. MEDROXYPROGESTERONE ACETATE [Suspect]
     Indication: HORMONE REPLACEMENT THERAPY
     Dosage: 10 MG, ORAL ; 10 MG
     Route: 048
     Dates: start: 19860101, end: 19960701
  4. MEDROXYPROGESTERONE ACETATE [Suspect]
     Indication: HORMONE REPLACEMENT THERAPY
     Dosage: 10 MG, ORAL ; 10 MG
     Route: 048
     Dates: start: 19961101, end: 19991101
  5. PREMARIN [Suspect]
     Indication: HORMONE REPLACEMENT THERAPY
     Dosage: 0.625 MG
     Dates: start: 19630101, end: 19860101
  6. PREMARIN [Suspect]
     Indication: HORMONE REPLACEMENT THERAPY
     Dosage: 0.625 MG
     Dates: start: 19860101, end: 19991101
  7. CYCRIN [Suspect]
     Indication: HORMONE REPLACEMENT THERAPY
     Dosage: 10 MG ; 10 MG
     Dates: start: 19860101, end: 19960701
  8. CYCRIN [Suspect]
     Indication: HORMONE REPLACEMENT THERAPY
     Dosage: 10 MG ; 10 MG
     Dates: start: 19961101, end: 19991101
  9. PREMPRO [Suspect]
     Indication: HORMONE REPLACEMENT THERAPY
     Dates: start: 19960701, end: 19961101
  10. ASPIRIN [Concomitant]
  11. CLONIDINE [Concomitant]
  12. DOXAZOSIN MESYLATE [Concomitant]
  13. LORAZEPAM [Concomitant]

REACTIONS (1)
  - BREAST CANCER IN SITU [None]
